FAERS Safety Report 7225664-9 (Version None)
Quarter: 2011Q1

REPORT INFORMATION
  Report Type: 
  Country: None (occurrence: None)
  Receive Date: 20110107
  Receipt Date: 20110107
  Transmission Date: 20110831
  Serious: No
  Sender: FDA-Public Use
  Company Number: None

PATIENT
  Age: 64 Year
  Sex: Male
  Weight: 129.2752 kg

DRUGS (1)
  1. OXALIPLATIN [Suspect]
     Indication: COLON CANCER
     Dosage: 251 MG IVSS PER PAC
     Route: 042
     Dates: start: 20110103

REACTIONS (3)
  - DYSPNOEA [None]
  - DIZZINESS [None]
  - FLUSHING [None]
